FAERS Safety Report 11050854 (Version 1)
Quarter: 2015Q2

REPORT INFORMATION
  Report Type: Spontaneous
  Country: US (occurrence: None)
  Receive Date: 20150420
  Receipt Date: 20150420
  Transmission Date: 20150821
  Serious: No
  Sender: FDA-Public Use
  Company Number: None

PATIENT

DRUGS (1)
  1. ANDROGEL [Suspect]
     Active Substance: TESTOSTERONE

REACTIONS (2)
  - Product substitution issue [None]
  - Product label issue [None]
